FAERS Safety Report 17277188 (Version 1)
Quarter: 2020Q1

REPORT INFORMATION
  Report Type: Report from Study
  Country: JP (occurrence: JP)
  Receive Date: 20200116
  Receipt Date: 20200116
  Transmission Date: 20200409
  Serious: Yes (Other)
  Sender: FDA-Public Use
  Company Number: JP-TEVA-2020-JP-1170775

PATIENT
  Age: 76 Year
  Sex: Female
  Weight: 45 kg

DRUGS (7)
  1. DOMPERIDONE [Concomitant]
     Active Substance: DOMPERIDONE
     Route: 065
  2. RASAGILINE MESILATE [Suspect]
     Active Substance: RASAGILINE MESYLATE
     Indication: PARKINSON^S DISEASE
     Dosage: 1 MILLIGRAM DAILY;
     Route: 065
     Dates: start: 20190806, end: 20191105
  3. LEVODOPA [Concomitant]
     Active Substance: LEVODOPA
     Route: 065
  4. PURSENNID [Concomitant]
     Route: 065
  5. NOURIAST [Concomitant]
     Active Substance: ISTRADEFYLLINE
  6. REQUIP [Concomitant]
     Active Substance: ROPINIROLE HYDROCHLORIDE
  7. PLETAAL [Concomitant]
     Active Substance: CILOSTAZOL
     Route: 065

REACTIONS (2)
  - Condition aggravated [Recovered/Resolved]
  - Hallucination, visual [Recovered/Resolved]

NARRATIVE: CASE EVENT DATE: 20191001
